FAERS Safety Report 8521595-2 (Version None)
Quarter: 2012Q3

REPORT INFORMATION
  Report Type: 
  Country: None (occurrence: None)
  Receive Date: 20120719
  Receipt Date: 20120716
  Transmission Date: 20120928
  Serious: Yes (Other)
  Sender: FDA-Public Use
  Company Number: PHEH2012US014005

PATIENT
  Sex: Female
  Weight: 68.027 kg

DRUGS (3)
  1. VESICARE [Concomitant]
     Dosage: 10 MG, UNK
  2. GILENYA [Suspect]
     Dosage: 0.5 MG, DAILY
     Route: 048
  3. CYMBALTA [Concomitant]
     Dosage: 20 MG, UNK

REACTIONS (2)
  - CENTRAL NERVOUS SYSTEM LESION [None]
  - MUSCULAR WEAKNESS [None]
